FAERS Safety Report 23365125 (Version 1)
Quarter: 2024Q1

REPORT INFORMATION
  Report Type: Spontaneous
  Country: DE (occurrence: DE)
  Receive Date: 20240104
  Receipt Date: 20240104
  Transmission Date: 20240410
  Serious: Yes (Death, Hospitalization)
  Sender: FDA-Public Use
  Company Number: DE-002147023-NVSC2020DE248476

PATIENT
  Sex: Female
  Weight: 48 kg

DRUGS (5)
  1. FULVESTRANT [Suspect]
     Active Substance: FULVESTRANT
     Indication: Hormone receptor positive HER2 negative breast cancer
     Dosage: 250 MG (DAILY DOSE), Q4W
     Route: 030
     Dates: start: 20200702, end: 20201221
  2. FULVESTRANT [Suspect]
     Active Substance: FULVESTRANT
     Dosage: 250 MG, Q4W (DAILY DOSE)
     Route: 030
     Dates: start: 20210323, end: 20220112
  3. KISQALI [Suspect]
     Active Substance: RIBOCICLIB
     Indication: Hormone receptor positive HER2 negative breast cancer
     Dosage: 600 MG, QD (ADMINISTRATION SCHEME 21 DAYS INTAKE, 7 DAYS PAUSE)
     Route: 048
     Dates: start: 20200721, end: 20201221
  4. KISQALI [Suspect]
     Active Substance: RIBOCICLIB
     Dosage: 600 MG, QD (ADMINISTRATION SCHEME 21 DAYS INTAKE, 7 DAYS PAUSE)
     Route: 048
     Dates: start: 20210323, end: 20211006
  5. KISQALI [Suspect]
     Active Substance: RIBOCICLIB
     Dosage: 400 MG, QD (ADMINISTRATION SCHEME 21 DAYS INTAKE, 7 DAYS PAUSE)
     Route: 048
     Dates: start: 20211007, end: 20220112

REACTIONS (7)
  - Vomiting [Fatal]
  - General physical health deterioration [Fatal]
  - Nausea [Fatal]
  - Blood creatinine increased [Recovering/Resolving]
  - Urinary tract infection [Recovered/Resolved]
  - Visual impairment [Recovered/Resolved]
  - Dyspepsia [Recovered/Resolved]

NARRATIVE: CASE EVENT DATE: 20200722
